FAERS Safety Report 7318902-5 (Version None)
Quarter: 2011Q1

REPORT INFORMATION
  Report Type: 
  Country: None (occurrence: None)
  Receive Date: 20110228
  Receipt Date: 20110215
  Transmission Date: 20110831
  Serious: Yes (Hospitalization)
  Sender: FDA-Public Use
  Company Number: US-ELI_LILLY_AND_COMPANY-US201010001174

PATIENT
  Age: 74 Year
  Sex: Female

DRUGS (3)
  1. METOPROLOL [Concomitant]
     Indication: HYPERTENSION
  2. FORTEO [Suspect]
     Indication: OSTEOPOROSIS
     Dosage: 20 UG, DAILY (1/D)
  3. PREDNISONE [Concomitant]
     Route: 047

REACTIONS (9)
  - VITAMIN D DECREASED [None]
  - SOMNOLENCE [None]
  - ASTHENIA [None]
  - BONE MARROW DISORDER [None]
  - CATARACT [None]
  - BLOOD CHOLESTEROL INCREASED [None]
  - HEADACHE [None]
  - MIGRAINE [None]
  - BENIGN LUNG NEOPLASM [None]
